FAERS Safety Report 8679217 (Version 2)
Quarter: 2013Q1

REPORT INFORMATION
  Report Type: Spontaneous
  Country: US (occurrence: US)
  Receive Date: 20120724
  Receipt Date: 20130201
  Transmission Date: 20140127
  Serious: Yes (Hospitalization, Other)
  Sender: FDA-Public Use
  Company Number: US-BAYER-2012-072076

PATIENT
  Age: 29 Year
  Sex: Female
  Weight: 71.66 kg

DRUGS (15)
  1. YAZ [Suspect]
     Indication: ACNE
     Dosage: UNK
     Dates: start: 20051012, end: 20111130
  2. YAZ [Suspect]
     Indication: CONTRACEPTION
  3. YASMIN [Suspect]
     Indication: ACNE
     Dosage: UNK
     Dates: start: 20051012, end: 20111130
  4. YASMIN [Suspect]
     Indication: CONTRACEPTION
  5. GIANVI [Suspect]
     Indication: ACNE
     Dosage: UNK
     Dates: start: 20051012, end: 20111130
  6. GIANVI [Suspect]
     Indication: CONTRACEPTION
  7. NABUMETONE [Concomitant]
     Dosage: 50 MG, UNK
     Dates: start: 20110109
  8. AMOXICILLIN [Concomitant]
     Dosage: 500 MG, UNK
     Dates: start: 20110115
  9. AMOXICILLIN [Concomitant]
     Dosage: 875 MG, UNK
     Dates: start: 20110403
  10. FLUCONAZOLE [Concomitant]
     Dosage: 150 MG, UNK
     Dates: start: 20110214
  11. METRONIDAZOLE [Concomitant]
     Dosage: 0.75% GEL
     Dates: start: 20110215
  12. DICYCLOMINE [Concomitant]
     Dosage: 10 MG, UNK
     Dates: start: 20110216
  13. PROMETHAZINE [Concomitant]
     Dosage: 25 MG, UNK
     Dates: start: 20110315
  14. DROSPIRENONE W/ETHINYLESTRADIOL [Concomitant]
     Dosage: UNK
     Dates: start: 20051012, end: 20111130
  15. NORCO [Concomitant]

REACTIONS (8)
  - Pulmonary embolism [None]
  - Deep vein thrombosis [None]
  - Myocardial infarction [None]
  - Cerebrovascular accident [None]
  - Gallbladder disorder [None]
  - Pain [None]
  - Injury [None]
  - Pain [None]
